FAERS Safety Report 13544675 (Version 2)
Quarter: 2017Q2

REPORT INFORMATION
  Report Type: Spontaneous
  Country: ES (occurrence: ES)
  Receive Date: 20170515
  Receipt Date: 20170525
  Transmission Date: 20170830
  Serious: Yes (Other)
  Sender: FDA-Public Use
  Company Number: ES-ABBVIE-17P-144-1945874-00

PATIENT
  Age: 2 Year
  Sex: Female
  Weight: 13 kg

DRUGS (4)
  1. KREON [Suspect]
     Active Substance: PANCRELIPASE
     Indication: CYSTIC FIBROSIS
     Route: 048
     Dates: start: 201411
  2. NORMAL SALINE [Concomitant]
     Active Substance: SODIUM CHLORIDE
     Indication: CYSTIC FIBROSIS
     Dates: start: 20150826
  3. KREON [Suspect]
     Active Substance: PANCRELIPASE
     Route: 048
     Dates: end: 201411
  4. KREON [Suspect]
     Active Substance: PANCRELIPASE
     Route: 048
     Dates: start: 201411

REACTIONS (2)
  - Steatorrhoea [Recovering/Resolving]
  - Product quality issue [Unknown]

NARRATIVE: CASE EVENT DATE: 201703
